FAERS Safety Report 6124796-6 (Version None)
Quarter: 2009Q1

REPORT INFORMATION
  Report Type: 
  Country: None (occurrence: None)
  Receive Date: 20090319
  Receipt Date: 20090218
  Transmission Date: 20090719
  Serious: No
  Sender: FDA-Public Use
  Company Number: US-JNJFOC-20090205088

PATIENT
  Sex: Male
  Weight: 63.05 kg

DRUGS (2)
  1. INVEGA [Suspect]
     Indication: CYCLOTHYMIC DISORDER
     Route: 048
  2. TOPAMAX [Concomitant]
     Indication: OBSESSIVE-COMPULSIVE DISORDER
     Route: 048

REACTIONS (2)
  - BLOOD PROLACTIN INCREASED [None]
  - NODULE [None]
